FAERS Safety Report 4820269-9 (Version None)
Quarter: 2005Q4

REPORT INFORMATION
  Report Type: 
  Country: None (occurrence: None)
  Receive Date: 20051014
  Receipt Date: 20050901
  Transmission Date: 20060501
  Serious: No
  Sender: FDA-Public Use
  Company Number: 2005SP002614

PATIENT
  Age: 58 Year
  Sex: Female
  Weight: 70.3075 kg

DRUGS (4)
  1. LUNESTA [Suspect]
     Indication: INSOMNIA
     Dosage: 2 MG;HS;ORAL
     Route: 048
     Dates: start: 20050827, end: 20050828
  2. WELLBUTRIN [Concomitant]
  3. ASACOL [Concomitant]
  4. TOPROL-XL [Concomitant]

REACTIONS (3)
  - AGGRESSION [None]
  - APATHY [None]
  - DEPRESSION [None]
